FAERS Safety Report 21151160 (Version 4)
Quarter: 2022Q3

REPORT INFORMATION
  Report Type: Report from Study
  Country: CO (occurrence: CO)
  Receive Date: 20220730
  Receipt Date: 20220929
  Transmission Date: 20221027
  Serious: Yes (Life-Threatening, Hospitalization, Other)
  Sender: FDA-Public Use
  Company Number: CO-ABBVIE-22K-036-4487511-00

PATIENT
  Sex: Male
  Weight: 66 kg

DRUGS (1)
  1. ZEMPLAR [Suspect]
     Active Substance: PARICALCITOL
     Indication: Hyperparathyroidism secondary
     Dosage: 1 UNIT DOSE POST DIALYSIS
     Route: 042
     Dates: start: 20211228, end: 20220301

REACTIONS (16)
  - Post procedural complication [Recovered/Resolved]
  - Haemorrhage [Recovered/Resolved]
  - Oxygen saturation decreased [Not Recovered/Not Resolved]
  - Vein rupture [Recovered/Resolved]
  - Listless [Not Recovered/Not Resolved]
  - Fistula [Recovered/Resolved]
  - COVID-19 [Recovered/Resolved]
  - Weight decreased [Not Recovered/Not Resolved]
  - Laboratory test abnormal [Not Recovered/Not Resolved]
  - Erythema [Recovered/Resolved]
  - Inflammation [Recovered/Resolved]
  - Infection [Recovered/Resolved]
  - Abdominal discomfort [Not Recovered/Not Resolved]
  - Limb injury [Recovered/Resolved]
  - Angiopathy [Recovered/Resolved]
  - Arteriovenous fistula site complication [Recovered/Resolved]

NARRATIVE: CASE EVENT DATE: 20220101
